FAERS Safety Report 8473678-3 (Version None)
Quarter: 2012Q2

REPORT INFORMATION
  Report Type: 
  Country: None (occurrence: None)
  Receive Date: 20120628
  Receipt Date: 20110906
  Transmission Date: 20120825
  Serious: Yes (Other)
  Sender: FDA-Public Use
  Company Number: US-MYLANLABS-2011S1017689

PATIENT
  Age: 45 Year
  Sex: Female

DRUGS (7)
  1. CLOZAPINE [Suspect]
     Indication: SCHIZOAFFECTIVE DISORDER
     Route: 048
     Dates: end: 20110812
  2. LITHIUM CARBONATE [Concomitant]
  3. CLOZAPINE [Suspect]
     Route: 048
     Dates: start: 20110819
  4. LEVOTHYROXINE [Concomitant]
  5. SENOKOT [Concomitant]
  6. COGENTIN [Concomitant]
  7. HALIDOL [Concomitant]

REACTIONS (1)
  - LEUKOPENIA [None]
